FAERS Safety Report 9360579 (Version 3)
Quarter: 2013Q4

REPORT INFORMATION
  Report Type: Report from Study
  Country: AU (occurrence: AU)
  Receive Date: 20130621
  Receipt Date: 20131025
  Transmission Date: 20140711
  Serious: Yes (Death, Hospitalization, Other)
  Sender: FDA-Public Use
  Company Number: PHHY2013AU063831

PATIENT
  Age: 68 Year
  Sex: Female

DRUGS (17)
  1. ACLASTA [Suspect]
     Dosage: 5 MG, UNK
     Route: 042
     Dates: start: 20110709
  2. ACLASTA [Suspect]
     Dosage: 5 MG, UNK
     Route: 042
     Dates: start: 20120721
  3. FENTANYL [Concomitant]
     Dosage: UNK, PRN
  4. FENTANYL [Concomitant]
     Dosage: UNK, QD
  5. BISACODYL [Concomitant]
     Indication: CONSTIPATION
     Dosage: 1 PR 3RD DAILY
  6. SUPPOSITOIRES A LA GLYCERINE [Concomitant]
     Indication: CONSTIPATION
     Dosage: 1 PR 3RD DAILY
  7. DEXAMETHASONE [Concomitant]
     Dosage: 0.5 MG, QD
     Route: 058
  8. MIDAZOLAM [Concomitant]
     Indication: RESPIRATORY DISTRESS
     Dosage: UKN, PRN
  9. MIDAZOLAM [Concomitant]
     Dosage: SCSD MIDAZOLAM 10 MG/24 HRS
  10. MIDAZOLAM [Concomitant]
     Dosage: SCSD MIDAZOLAM 30 MG/24HRS
  11. MIDAZOLAM [Concomitant]
     Dosage: 5 MG, PRN
     Route: 058
  12. MORPHINE [Concomitant]
     Indication: PAIN
     Dosage: 2.5 MG, PRN
     Route: 058
  13. CYCLIZINE [Concomitant]
     Indication: NAUSEA
     Dosage: UNK UKN, TID
     Route: 058
  14. GLYCOPYRROLATE [Concomitant]
     Indication: SECRETION DISCHARGE
     Dosage: UKN, PRN
     Route: 058
  15. PHENOBARBITONE [Concomitant]
     Indication: RESPIRATORY DISTRESS
     Dosage: 200 MG, Q6H
     Route: 058
  16. GABAPENTIN [Concomitant]
     Dosage: 600 MG, TDS
  17. CYMBALTA [Concomitant]
     Dosage: 90 MG, UNK

REACTIONS (40)
  - Pneumonia aspiration [Fatal]
  - Delirium [Fatal]
  - Confusional state [Fatal]
  - Agitation [Fatal]
  - Somnolence [Fatal]
  - Restlessness [Fatal]
  - Neuralgia [Unknown]
  - Dementia [Unknown]
  - Dysphagia [Unknown]
  - Dementia with Lewy bodies [Unknown]
  - Cerebral atrophy [Unknown]
  - Mydriasis [Unknown]
  - Apnoea [Unknown]
  - General physical health deterioration [Unknown]
  - Tachycardia [Unknown]
  - Hypoxia [Unknown]
  - Emphysema [Unknown]
  - Pulmonary oedema [Unknown]
  - Diastolic dysfunction [Unknown]
  - Infection [Recovered/Resolved]
  - Scleroderma [Unknown]
  - Renal impairment [Unknown]
  - Metabolic alkalosis [Unknown]
  - Haematuria [Recovered/Resolved]
  - Carotid artery disease [Unknown]
  - Limb discomfort [Unknown]
  - Carotid bruit [Unknown]
  - Chronic obstructive pulmonary disease [Unknown]
  - Infectious colitis [Unknown]
  - Acidosis [Unknown]
  - Dyspnoea exertional [Unknown]
  - Balance disorder [Unknown]
  - Gait disturbance [Unknown]
  - Tremor [Unknown]
  - Asthenia [Unknown]
  - Blood bilirubin increased [Unknown]
  - Blood alkaline phosphatase increased [Unknown]
  - Gamma-glutamyltransferase increased [Unknown]
  - Blood albumin decreased [Unknown]
  - Dyspnoea [Unknown]
